FAERS Safety Report 4536967-0 (Version None)
Quarter: 2004Q4

REPORT INFORMATION
  Report Type: 
  Country: None (occurrence: None)
  Receive Date: 20041220
  Receipt Date: 20041204
  Transmission Date: 20050328
  Serious: Yes (Other)
  Sender: FDA-Public Use
  Company Number: ST-2004-008178

PATIENT
  Age: 62 Year
  Sex: Male

DRUGS (4)
  1. OLMETEC [Suspect]
     Indication: ESSENTIAL HYPERTENSION
     Dosage: 20 MG QD PO
     Route: 048
     Dates: start: 20041129, end: 20041202
  2. ASPIRIN [Concomitant]
  3. LASIX [Concomitant]
  4. MAINTATE [Concomitant]

REACTIONS (8)
  - BLOOD PRESSURE DECREASED [None]
  - DIZZINESS [None]
  - DIZZINESS POSTURAL [None]
  - FATIGUE [None]
  - HYPOAESTHESIA [None]
  - LOSS OF CONSCIOUSNESS [None]
  - SOMNOLENCE [None]
  - SPEECH DISORDER [None]
